FAERS Safety Report 20962023 (Version 1)
Quarter: 2022Q2

REPORT INFORMATION
  Report Type: Spontaneous
  Country: US (occurrence: None)
  Receive Date: 20220614
  Receipt Date: 20220614
  Transmission Date: 20220721
  Serious: Yes (Other)
  Sender: FDA-Public Use
  Company Number: None

PATIENT
  Age: 73 Year
  Sex: Female
  Weight: 81.45 kg

DRUGS (6)
  1. RYBELSUS [Suspect]
     Active Substance: SEMAGLUTIDE
     Indication: Type 2 diabetes mellitus
     Dosage: FREQUENCY : DAILY;?
     Route: 048
     Dates: start: 20220420, end: 20220526
  2. lisinopril 20 mg po daily [Concomitant]
  3. chlorthalidone 25 mg po daily [Concomitant]
  4. metformin XR 2000 mg po daily [Concomitant]
  5. sertraline 50 mg po daily [Concomitant]
  6. simvastatin 20 mg po daily [Concomitant]

REACTIONS (7)
  - Inappropriate schedule of product administration [None]
  - Therapy interrupted [None]
  - Lip swelling [None]
  - Eye swelling [None]
  - Swelling face [None]
  - Eyelids pruritus [None]
  - Adverse reaction [None]

NARRATIVE: CASE EVENT DATE: 20220526
